FAERS Safety Report 16986263 (Version 1)
Quarter: 2019Q4

REPORT INFORMATION
  Report Type: Spontaneous
  Country: US (occurrence: US)
  Receive Date: 20190918
  Receipt Date: 20190918
  Transmission Date: 20200122
  Serious: No
  Sender: FDA-Public Use
  Company Number: None

PATIENT
  Age: 63 Year
  Sex: Male

DRUGS (1)
  1. OZURDEX [Suspect]
     Active Substance: DEXAMETHASONE
     Indication: TYPE 2 DIABETES MELLITUS
     Dosage: ?          OTHER FREQUENCY:EVERY 3 MONTHS;OTHER ROUTE:INTRAVITREAL?
     Dates: start: 20190514

REACTIONS (4)
  - Drug dose omission by device [None]
  - Product quality issue [None]
  - Adverse event [None]
  - Device malfunction [None]

NARRATIVE: CASE EVENT DATE: 201908
